FAERS Safety Report 18416259 (Version 3)
Quarter: 2020Q4

REPORT INFORMATION
  Report Type: Spontaneous
  Country: BE (occurrence: BE)
  Receive Date: 20201022
  Receipt Date: 20201214
  Transmission Date: 20210114
  Serious: Yes (Other)
  Sender: FDA-Public Use
  Company Number: BE-ASTRAZENECA-2020SF37655

PATIENT
  Age: 72 Year
  Sex: Female
  Weight: 68 kg

DRUGS (5)
  1. OMEPRAZOLE. [Concomitant]
     Active Substance: OMEPRAZOLE
     Route: 065
  2. TAVONIN [Concomitant]
     Active Substance: GINKGO
     Route: 065
  3. QUININE [Concomitant]
     Active Substance: QUININE
     Route: 065
  4. OLAPARIB. [Suspect]
     Active Substance: OLAPARIB
     Indication: OVARIAN EPITHELIAL CANCER METASTATIC
     Dosage: 600.0MG UNKNOWN
     Route: 048
     Dates: start: 201902, end: 202007
  5. FEMARA [Suspect]
     Active Substance: LETROZOLE
     Dosage: UNK
     Route: 065
     Dates: start: 2020, end: 2020

REACTIONS (4)
  - Myelodysplastic syndrome [Not Recovered/Not Resolved]
  - Carbohydrate antigen 125 increased [Unknown]
  - Dyspepsia [Unknown]
  - Acute leukaemia [Unknown]

NARRATIVE: CASE EVENT DATE: 2020
